FAERS Safety Report 20373808 (Version 1)
Quarter: 2022Q1

REPORT INFORMATION
  Report Type: Spontaneous
  Country: ES (occurrence: ES)
  Receive Date: 20220125
  Receipt Date: 20220125
  Transmission Date: 20220423
  Serious: Yes (Hospitalization, Other)
  Sender: FDA-Public Use
  Company Number: None

PATIENT
  Age: 40 Year
  Sex: Female

DRUGS (3)
  1. CLONAZEPAM [Suspect]
     Active Substance: CLONAZEPAM
     Dosage: 20 TABLETS OF CLONAZEPAM 2MG
     Route: 048
     Dates: start: 20210922, end: 20210922
  2. QUETIAPINE FUMARATE [Suspect]
     Active Substance: QUETIAPINE FUMARATE
     Dosage: 21 TABLETS OF QUETIAPINE 250 MG
     Route: 048
     Dates: start: 20210922, end: 20210922
  3. LITHIUM [Suspect]
     Active Substance: LITHIUM
     Dosage: 12 LITHIUM TABLETS 400 MG
     Route: 048
     Dates: start: 20210922, end: 20210922

REACTIONS (2)
  - Depressed level of consciousness [Recovered/Resolved]
  - Suicide attempt [Unknown]

NARRATIVE: CASE EVENT DATE: 20210922
